FAERS Safety Report 16968012 (Version 2)
Quarter: 2019Q4

REPORT INFORMATION
  Report Type: Spontaneous
  Country: US (occurrence: US)
  Receive Date: 20191028
  Receipt Date: 20191127
  Transmission Date: 20200122
  Serious: Yes (Other)
  Sender: FDA-Public Use
  Company Number: US-ALLERGAN-1942451US

PATIENT
  Sex: Female

DRUGS (5)
  1. BOTOX [Suspect]
     Active Substance: ONABOTULINUMTOXINA
     Dosage: UNK, SINGLE
     Dates: start: 20190925, end: 20190925
  2. BACLOFEN. [Concomitant]
     Active Substance: BACLOFEN
     Indication: TORTICOLLIS
     Dosage: UNK, PRN
  3. KLONOPIN [Concomitant]
     Active Substance: CLONAZEPAM
     Indication: TORTICOLLIS
     Dosage: UNK, PRN
  4. EFFEXOR [Concomitant]
     Active Substance: VENLAFAXINE HYDROCHLORIDE
     Indication: VESTIBULAR MIGRAINE
     Dosage: UNK
     Dates: start: 2019
  5. BOTOX [Suspect]
     Active Substance: ONABOTULINUMTOXINA
     Indication: TORTICOLLIS
     Dosage: UNK, SINGLE
     Dates: start: 20190925, end: 20190925

REACTIONS (6)
  - Cardiac flutter [Not Recovered/Not Resolved]
  - Traumatic lung injury [Recovered/Resolved]
  - Anxiety [Not Recovered/Not Resolved]
  - Autonomic nervous system imbalance [Unknown]
  - Palpitations [Not Recovered/Not Resolved]
  - Influenza like illness [Not Recovered/Not Resolved]
